FAERS Safety Report 7792197-0 (Version None)
Quarter: 2011Q4

REPORT INFORMATION
  Report Type: 
  Country: None (occurrence: None)
  Receive Date: 20111003
  Receipt Date: 20111003
  Transmission Date: 20120403
  Serious: No
  Sender: FDA-Public Use
  Company Number: None

PATIENT
  Age: 56 Year
  Sex: Male
  Weight: 81.646 kg

DRUGS (1)
  1. CIPROFLOXACIN HCL [Suspect]
     Indication: PROSTATITIS
     Dosage: 500MG
     Route: 048
     Dates: start: 20110922, end: 20110925

REACTIONS (9)
  - JOINT SWELLING [None]
  - SKIN BURNING SENSATION [None]
  - MOVEMENT DISORDER [None]
  - ANXIETY [None]
  - JOINT STIFFNESS [None]
  - TENDONITIS [None]
  - JOINT CREPITATION [None]
  - PANIC REACTION [None]
  - FATIGUE [None]
